FAERS Safety Report 4478496-9 (Version None)
Quarter: 2004Q4

REPORT INFORMATION
  Report Type: 
  Country: None (occurrence: None)
  Receive Date: 20041019
  Receipt Date: 20040803
  Transmission Date: 20050328
  Serious: No
  Sender: FDA-Public Use
  Company Number: IE-AMGEN-US086714

PATIENT
  Sex: Female
  Weight: 54.03 kg

DRUGS (6)
  1. ENBREL [Suspect]
     Indication: PSORIASIS
     Route: 058
     Dates: start: 20040301
  2. METHOTREXATE [Concomitant]
     Route: 048
  3. SPIRONOLACTONE [Concomitant]
     Route: 061
     Dates: start: 20040401
  4. NEURONTIN [Concomitant]
     Route: 048
  5. CELEBREX [Concomitant]
     Route: 048
  6. LEXAPRO [Concomitant]
     Route: 048

REACTIONS (1)
  - FALL [None]
